FAERS Safety Report 8373498-4 (Version None)
Quarter: 2012Q2

REPORT INFORMATION
  Report Type: 
  Country: None (occurrence: None)
  Receive Date: 20120517
  Receipt Date: 20120423
  Transmission Date: 20120825
  Serious: Yes (Other)
  Sender: FDA-Public Use
  Company Number: GBR-LIT-2012001

PATIENT
  Age: 25 Year
  Sex: Female

DRUGS (5)
  1. CYSTADANE [Suspect]
     Indication: HOMOCYSTINURIA
     Dosage: 6 G EVERY DAY;
  2. FOLIC ACID [Concomitant]
  3. HYDROXOCOBALAMIN [Concomitant]
  4. PYRIDOXINE HCL [Concomitant]
  5. HEPARIN [Concomitant]

REACTIONS (2)
  - MATERNAL EXPOSURE DURING PREGNANCY [None]
  - ABORTION INDUCED [None]
